FAERS Safety Report 6523415-4 (Version None)
Quarter: 2009Q4

REPORT INFORMATION
  Report Type: 
  Country: None (occurrence: None)
  Receive Date: 20091231
  Receipt Date: 20091224
  Transmission Date: 20100525
  Serious: Yes (Life-Threatening, Hospitalization, Disabling, Other)
  Sender: FDA-Public Use
  Company Number: US-CELGENEUS-163-21880-09112140

PATIENT
  Sex: Male

DRUGS (2)
  1. REVLIMID [Suspect]
     Indication: MULTIPLE MYELOMA
     Route: 048
     Dates: start: 20091108, end: 20091116
  2. REVLIMID [Suspect]
     Route: 048
     Dates: start: 20091207

REACTIONS (6)
  - ASTHENIA [None]
  - DISSEMINATED INTRAVASCULAR COAGULATION [None]
  - MULTIPLE MYELOMA [None]
  - PANCYTOPENIA [None]
  - PNEUMONIA [None]
  - THROMBOCYTOPENIA [None]
